FAERS Safety Report 24129001 (Version 1)
Quarter: 2024Q3

REPORT INFORMATION
  Report Type: Spontaneous
  Country: US (occurrence: None)
  Receive Date: 20240722
  Receipt Date: 20240722
  Transmission Date: 20241017
  Serious: Yes (Hospitalization, Disabling)
  Sender: Public
  Company Number: None

PATIENT
  Age: 32 Year
  Sex: Female
  Weight: 93.6 kg

DRUGS (7)
  1. NIACINAMIDE\TIRZEPATIDE [Suspect]
     Active Substance: NIACINAMIDE\TIRZEPATIDE
     Indication: Obesity
     Dosage: OTHER QUANTITY : 1 INJECTION(S)?OTHER FREQUENCY : ONCE A WEEK;
     Route: 058
     Dates: start: 20240630, end: 20240714
  2. SYNTHROID [Concomitant]
     Active Substance: LEVOTHYROXINE SODIUM
  3. ZOLOFT [Concomitant]
     Active Substance: SERTRALINE HYDROCHLORIDE
  4. WELLBUTRIN [Concomitant]
     Active Substance: BUPROPION HYDROCHLORIDE
  5. VITAMIN D [Concomitant]
     Active Substance: VITAMIN D NOS
  6. PROBIOTICS NOS [Concomitant]
     Active Substance: PROBIOTICS NOS
  7. ZINC [Concomitant]
     Active Substance: ZINC

REACTIONS (9)
  - Muscle spasms [None]
  - Diarrhoea [None]
  - Flatulence [None]
  - Dyspepsia [None]
  - Abdominal tenderness [None]
  - Abdominal pain upper [None]
  - Dysphonia [None]
  - Fatigue [None]
  - Dehydration [None]

NARRATIVE: CASE EVENT DATE: 20240717
